FAERS Safety Report 5989072-0 (Version None)
Quarter: 2008Q4

REPORT INFORMATION
  Report Type: 
  Country: None (occurrence: None)
  Receive Date: 20081209
  Receipt Date: 20081209
  Transmission Date: 20090506
  Serious: Yes (Hospitalization)
  Sender: FDA-Public Use
  Company Number: None

PATIENT
  Age: 88 Year
  Sex: Female

DRUGS (1)
  1. ISOSORBIDE MONONITRATE [Suspect]
     Dosage: 30MG DAILY PO
     Route: 048
     Dates: start: 20081113, end: 20081123

REACTIONS (3)
  - DIZZINESS [None]
  - FALL [None]
  - LOWER LIMB FRACTURE [None]
